FAERS Safety Report 11414862 (Version 1)
Quarter: 2015Q3

REPORT INFORMATION
  Report Type: Spontaneous
  Country: GB (occurrence: None)
  Receive Date: 20150821
  Receipt Date: 20150821
  Transmission Date: 20151125
  Serious: No
  Sender: FDA-Public Use
  Company Number: GB-LHC-2015103

PATIENT
  Sex: Male

DRUGS (1)
  1. COMPRESSED MEDICAL OXYGEN (OXYGEN) (INHALATION GAS) (OXYGEN) (VERUM) [Suspect]
     Active Substance: OXYGEN
     Dosage: PATIENT USES 15 HOURS/DAY, INHALATION

REACTIONS (3)
  - Fall [None]
  - Wrong technique in product usage process [None]
  - Thermal burn [None]
